FAERS Safety Report 16404744 (Version 4)
Quarter: 2019Q3

REPORT INFORMATION
  Report Type: Spontaneous
  Country: US (occurrence: US)
  Receive Date: 20190607
  Receipt Date: 20190820
  Transmission Date: 20191004
  Serious: Yes (Other)
  Sender: FDA-Public Use
  Company Number: US-JNJFOC-20190530051

PATIENT
  Age: 54 Year
  Sex: Male
  Weight: 81.72 kg

DRUGS (3)
  1. SPRAVATO [Suspect]
     Active Substance: ESKETAMINE
     Indication: ANXIETY
     Dosage: X 4 WEEKS
  2. SPRAVATO [Suspect]
     Active Substance: ESKETAMINE
     Indication: POST-TRAUMATIC STRESS DISORDER
  3. SPRAVATO [Suspect]
     Active Substance: ESKETAMINE
     Indication: DEPRESSION
     Dates: start: 20190515, end: 20190705

REACTIONS (4)
  - Anxiety [Recovered/Resolved]
  - Drug ineffective [Not Recovered/Not Resolved]
  - Mental impairment [Not Recovered/Not Resolved]
  - Ataxia [Not Recovered/Not Resolved]

NARRATIVE: CASE EVENT DATE: 20190516
